FAERS Safety Report 21768441 (Version 1)
Quarter: 2022Q4

REPORT INFORMATION
  Report Type: Spontaneous
  Country: FR (occurrence: FR)
  Receive Date: 20221222
  Receipt Date: 20221222
  Transmission Date: 20230113
  Serious: Yes (Life-Threatening, Other)
  Sender: FDA-Public Use
  Company Number: FR-NAPPMUNDI-GBR-2022-0103680

PATIENT
  Age: 40 Year
  Sex: Female

DRUGS (6)
  1. PROPOFOL [Suspect]
     Active Substance: PROPOFOL
     Indication: Anaesthesia
     Dosage: UNK
     Route: 042
     Dates: start: 20220922, end: 20220922
  2. KETAMINE HYDROCHLORIDE [Suspect]
     Active Substance: KETAMINE HYDROCHLORIDE
     Indication: Anaesthesia
     Dosage: UNK
     Route: 042
  3. KETAMINE [Suspect]
     Active Substance: KETAMINE
     Indication: Anaesthesia
     Dosage: UNK
     Route: 042
     Dates: start: 20220922, end: 20220922
  4. SUFENTANIL [Suspect]
     Active Substance: SUFENTANIL
     Indication: General anaesthesia
     Dosage: UNK
     Route: 042
     Dates: start: 20220922, end: 20220922
  5. BETADINE [Suspect]
     Active Substance: POVIDONE-IODINE
     Indication: Infection prophylaxis
     Dosage: TOTAL OF 1 APPLICATION
     Route: 003
     Dates: start: 20220922, end: 20220922
  6. DEXAMETHASONE [Suspect]
     Active Substance: DEXAMETHASONE
     Indication: Product used for unknown indication
     Dosage: UNK
     Route: 042
     Dates: start: 20220922, end: 20220922

REACTIONS (1)
  - Anaphylactic shock [Recovered/Resolved]

NARRATIVE: CASE EVENT DATE: 20220922
